FAERS Safety Report 7222890-X (Version None)
Quarter: 2011Q1

REPORT INFORMATION
  Report Type: 
  Country: None (occurrence: None)
  Receive Date: 20110106
  Receipt Date: 20110106
  Transmission Date: 20110831
  Serious: Yes (Hospitalization)
  Sender: FDA-Public Use
  Company Number: None

PATIENT
  Age: 75 Year
  Sex: Female
  Weight: 96.1 kg

DRUGS (6)
  1. COUMADIN [Concomitant]
  2. METOPROLOL [Concomitant]
  3. ACTOS [Concomitant]
  4. MORPHINE [Suspect]
     Indication: PROCEDURAL PAIN
     Dosage: 5MG IV (RECENTLY POSTOPERATIVE)
     Route: 042
  5. COLACE [Concomitant]
  6. LOSARTAN POTASSIUM [Concomitant]

REACTIONS (4)
  - HYPOXIA [None]
  - SPEECH DISORDER [None]
  - SNORING [None]
  - LETHARGY [None]
